FAERS Safety Report 18679668 (Version 1)
Quarter: 2020Q4

REPORT INFORMATION
  Report Type: Spontaneous
  Country: US (occurrence: US)
  Receive Date: 20201230
  Receipt Date: 20201230
  Transmission Date: 20210114
  Serious: Yes (Death, Other)
  Sender: FDA-Public Use
  Company Number: US-GLAXOSMITHKLINE-US2020GSK256248

PATIENT
  Sex: Female

DRUGS (2)
  1. RANITIDINE HYDROCHLORIDE. [Suspect]
     Active Substance: RANITIDINE HYDROCHLORIDE
     Indication: PRODUCT USED FOR UNKNOWN INDICATION
     Dosage: UNK
     Route: 065
  2. ZANTAC [Suspect]
     Active Substance: RANITIDINE HYDROCHLORIDE
     Indication: PRODUCT USED FOR UNKNOWN INDICATION
     Dosage: UNK
     Route: 065

REACTIONS (9)
  - Neoplasm malignant [Fatal]
  - Lung neoplasm malignant [Unknown]
  - Hepatic cancer [Unknown]
  - Bone cancer [Unknown]
  - Throat cancer [Unknown]
  - Nasal cavity cancer [Unknown]
  - Brain neoplasm malignant [Unknown]
  - Oesophageal carcinoma [Unknown]
  - Gastric cancer [Unknown]
